FAERS Safety Report 5345367-5 (Version None)
Quarter: 2007Q2

REPORT INFORMATION
  Report Type: 
  Country: None (occurrence: None)
  Receive Date: 20070605
  Receipt Date: 20070524
  Transmission Date: 20071010
  Serious: Yes (Hospitalization, Other)
  Sender: FDA-Public Use
  Company Number: PHMT2007CA01164

PATIENT
  Age: 56 Year
  Sex: Female

DRUGS (4)
  1. TRAZODONE HCL [Concomitant]
     Indication: SLEEP DISORDER
     Dosage: 140MG
  2. LASIX [Concomitant]
     Indication: OEDEMA
  3. PANTOPRAZOLE SODIUM [Concomitant]
     Indication: STOMACH DISCOMFORT
  4. ZELNORM [Suspect]

REACTIONS (11)
  - AMNESIA [None]
  - CARDIAC DISORDER [None]
  - CONSTIPATION [None]
  - DIZZINESS [None]
  - FLUID RETENTION [None]
  - GAIT DISTURBANCE [None]
  - MEGACOLON [None]
  - PAIN [None]
  - PALPITATIONS [None]
  - SPEECH DISORDER [None]
  - TRANSIENT ISCHAEMIC ATTACK [None]
